FAERS Safety Report 11778430 (Version 3)
Quarter: 2015Q4

REPORT INFORMATION
  Report Type: Report from Study
  Country: CA (occurrence: CA)
  Receive Date: 20151125
  Receipt Date: 20151229
  Transmission Date: 20160304
  Serious: Yes (Other)
  Sender: FDA-Public Use
  Company Number: CA-BRISTOL-MYERS SQUIBB COMPANY-BMS-2015-044912

PATIENT
  Age: 48 Year
  Sex: Female

DRUGS (4)
  1. ARAVA [Concomitant]
     Active Substance: LEFLUNOMIDE
     Indication: PRODUCT USED FOR UNKNOWN INDICATION
     Route: 065
  2. SYNTHROID [Concomitant]
     Active Substance: LEVOTHYROXINE SODIUM
     Indication: PRODUCT USED FOR UNKNOWN INDICATION
     Route: 065
  3. ABATACEPT [Suspect]
     Active Substance: ABATACEPT
     Indication: RHEUMATOID ARTHRITIS
     Dosage: 750 MG, Q2WK
     Route: 042
     Dates: start: 20150630
  4. CITALOPRAM [Concomitant]
     Active Substance: CITALOPRAM HYDROBROMIDE
     Indication: PRODUCT USED FOR UNKNOWN INDICATION
     Route: 065

REACTIONS (20)
  - Ligament sprain [Unknown]
  - Spondylitis [Unknown]
  - Fibromyalgia [Unknown]
  - Neck pain [Unknown]
  - Headache [Unknown]
  - Depression [Unknown]
  - Cough [Unknown]
  - Fatigue [Unknown]
  - Decreased appetite [Unknown]
  - Weight decreased [Unknown]
  - Dizziness [Recovered/Resolved]
  - Body temperature abnormal [Unknown]
  - Ear disorder [Unknown]
  - Musculoskeletal pain [Unknown]
  - Ear pain [Unknown]
  - Back pain [Unknown]
  - Sjogren^s syndrome [Unknown]
  - Pain [Unknown]
  - Hypoaesthesia [Unknown]
  - Pulse abnormal [Unknown]

NARRATIVE: CASE EVENT DATE: 2015
